FAERS Safety Report 25501859 (Version 1)
Quarter: 2025Q3

REPORT INFORMATION
  Report Type: Other
  Country: JP (occurrence: JP)
  Receive Date: 20250702
  Receipt Date: 20250702
  Transmission Date: 20251021
  Serious: Yes (Hospitalization)
  Sender: APPCO PHARMA LLC
  Company Number: JP-Appco Pharma LLC-2179745

PATIENT
  Age: 84 Year
  Sex: Female

DRUGS (1)
  1. CHLORPROMAZINE [Suspect]
     Active Substance: CHLORPROMAZINE
     Indication: Product used for unknown indication

REACTIONS (2)
  - Toxicity to various agents [Unknown]
  - Overdose [Unknown]
